FAERS Safety Report 10179810 (Version 1)
Quarter: 2014Q2

REPORT INFORMATION
  Report Type: Spontaneous
  Country: US (occurrence: US)
  Receive Date: 20140519
  Receipt Date: 20140519
  Transmission Date: 20141212
  Serious: No
  Sender: FDA-Public Use
  Company Number: US-AMGEN INC.-USASP2013070683

PATIENT
  Age: 70 Year
  Sex: Female

DRUGS (4)
  1. PROLIA [Suspect]
     Indication: PRODUCT USED FOR UNKNOWN INDICATION
     Dosage: UNK
     Route: 065
     Dates: start: 2010
  2. PROBIOTIC                          /06395501/ [Concomitant]
     Dosage: UNK UNK, BID
  3. GAS X [Concomitant]
     Dosage: UNK UNK, TID
  4. TRAMADOL [Concomitant]
     Dosage: UNK UNK, AS NECESSARY

REACTIONS (5)
  - Tooth crowding [Unknown]
  - Toothache [Unknown]
  - Loose tooth [Unknown]
  - Abdominal discomfort [Unknown]
  - Gallbladder disorder [Unknown]
